FAERS Safety Report 15800242 (Version 5)
Quarter: 2023Q4

REPORT INFORMATION
  Report Type: Report from Study
  Country: US (occurrence: US)
  Receive Date: 20190108
  Receipt Date: 20231212
  Transmission Date: 20240110
  Serious: Yes (Hospitalization, Other)
  Sender: FDA-Public Use
  Company Number: US-BAUSCH-BL-2019-000459

PATIENT
  Age: 74 Year
  Sex: Female
  Weight: 86.26 kg

DRUGS (20)
  1. SILIQ [Interacting]
     Active Substance: BRODALUMAB
     Indication: Psoriasis
     Dosage: 210MG/1.5ML, ON WEEKS 0,1,2, ABOUT 4 YEAR AGO
     Route: 058
     Dates: start: 2015
  2. SILIQ [Interacting]
     Active Substance: BRODALUMAB
     Dosage: 210MG/1.5ML, STOPPED USING AFTER BEING ON IT FOR ABOUT ONE AND A HALF YEARS
     Route: 058
  3. SILIQ [Interacting]
     Active Substance: BRODALUMAB
     Dosage: 210MG/1.5ML, ABOUT ONE AND A HALF TO TWO YEARS AGO, (ON WEEKS 0.1,2)
     Route: 058
  4. SILIQ [Interacting]
     Active Substance: BRODALUMAB
     Dosage: 210MG/1.5ML
     Route: 058
     Dates: end: 202111
  5. SILIQ [Interacting]
     Active Substance: BRODALUMAB
     Dosage: 210MG/1.5ML, STOPPED 4 MONTHS AGO
     Route: 058
     Dates: end: 2023
  6. LOSARTAN [Suspect]
     Active Substance: LOSARTAN
     Indication: Product used for unknown indication
     Route: 048
     Dates: end: 2019
  7. ALLOPURINOL [Concomitant]
     Active Substance: ALLOPURINOL
     Indication: Product used for unknown indication
  8. AMLODIPINE [Concomitant]
     Active Substance: AMLODIPINE BESYLATE
     Indication: Product used for unknown indication
  9. LIPITOR [Concomitant]
     Active Substance: ATORVASTATIN CALCIUM
     Indication: Product used for unknown indication
  10. COREG [Concomitant]
     Active Substance: CARVEDILOL
     Indication: Product used for unknown indication
  11. VITAMIN D3 [Concomitant]
     Active Substance: CHOLECALCIFEROL
     Indication: Product used for unknown indication
  12. CRANBERRY [Concomitant]
     Active Substance: CRANBERRY
     Indication: Product used for unknown indication
  13. CYMBALTA [Concomitant]
     Active Substance: DULOXETINE HYDROCHLORIDE
     Indication: Product used for unknown indication
  14. GLIPIZIDE XL [Concomitant]
     Active Substance: GLIPIZIDE
     Indication: Product used for unknown indication
  15. LISINOPRIL [Concomitant]
     Active Substance: LISINOPRIL
     Indication: Product used for unknown indication
  16. PREDNISONE [Concomitant]
     Active Substance: PREDNISONE
     Indication: Product used for unknown indication
  17. LYRICA [Concomitant]
     Active Substance: PREGABALIN
     Indication: Product used for unknown indication
  18. TIZANIDINE [Concomitant]
     Active Substance: TIZANIDINE
     Indication: Product used for unknown indication
  19. CYANOCOBALAMIN [Concomitant]
     Active Substance: CYANOCOBALAMIN
     Indication: Product used for unknown indication
  20. ALENDRONATE [Concomitant]
     Active Substance: ALENDRONATE SODIUM
     Indication: Product used for unknown indication

REACTIONS (8)
  - Hypervolaemia [Recovering/Resolving]
  - Psoriatic arthropathy [Unknown]
  - Urinary tract infection [Recovering/Resolving]
  - Lymphadenopathy [Unknown]
  - Psoriasis [Not Recovered/Not Resolved]
  - COVID-19 [Unknown]
  - Product dose omission issue [Unknown]
  - Therapy cessation [Unknown]

NARRATIVE: CASE EVENT DATE: 20180101
